FAERS Safety Report 8354252-6 (Version None)
Quarter: 2012Q2

REPORT INFORMATION
  Report Type: 
  Country: None (occurrence: None)
  Receive Date: 20120511
  Receipt Date: 20120508
  Transmission Date: 20120825
  Serious: Yes (Hospitalization, Other)
  Sender: FDA-Public Use
  Company Number: US-PFIZER INC-2012112329

PATIENT
  Sex: Female
  Weight: 47.166 kg

DRUGS (1)
  1. VENLAFAXINE HCL [Suspect]
     Indication: HOT FLUSH
     Dosage: 75 MG, 2X/DAY
     Dates: start: 20080101

REACTIONS (4)
  - RENAL DISORDER [None]
  - OBSTRUCTIVE UROPATHY [None]
  - LYMPHADENOPATHY [None]
  - RENAL FAILURE [None]
